FAERS Safety Report 18268759 (Version 1)
Quarter: 2020Q3

REPORT INFORMATION
  Report Type: Spontaneous
  Country: US (occurrence: US)
  Receive Date: 20200915
  Receipt Date: 20200915
  Transmission Date: 20201103
  Serious: Yes (Other)
  Sender: FDA-Public Use
  Company Number: US-RECKITT BENCKISER HEALTHCARE INT LIMITED-RB-92423-2020

PATIENT
  Age: 14 Year
  Sex: Female
  Weight: 63.49 kg

DRUGS (1)
  1. MUCINEX [Suspect]
     Active Substance: GUAIFENESIN
     Indication: INTENTIONAL SELF-INJURY
     Dosage: 120 MILLILITER (6 DOSE OF 20 ML EACH), SINGLE, FREQUENCY OF USE: ONCE
     Route: 048
     Dates: start: 20200901

REACTIONS (6)
  - Intentional overdose [Not Recovered/Not Resolved]
  - Lethargy [Not Recovered/Not Resolved]
  - Dysarthria [Not Recovered/Not Resolved]
  - Somnolence [Not Recovered/Not Resolved]
  - Intentional self-injury [Not Recovered/Not Resolved]
  - Confusional state [Not Recovered/Not Resolved]

NARRATIVE: CASE EVENT DATE: 20200901
